FAERS Safety Report 16560517 (Version 1)
Quarter: 2019Q3

REPORT INFORMATION
  Report Type: Spontaneous
  Country: US (occurrence: US)
  Receive Date: 20190711
  Receipt Date: 20190711
  Transmission Date: 20191004
  Serious: Yes (Other)
  Sender: FDA-Public Use
  Company Number: US-TEVA-2019-US-1074020

PATIENT
  Age: 62 Year
  Sex: Male

DRUGS (2)
  1. LEUPROLIDE [Concomitant]
     Active Substance: LEUPROLIDE
     Indication: PROSTATE CANCER METASTATIC
     Route: 065
  2. DOCETAXEL. [Suspect]
     Active Substance: DOCETAXEL
     Indication: PROSTATE CANCER METASTATIC
     Dosage: ADMINISTERED WEEKLY; RECEIVED TOTAL 10 CYCLES
     Route: 065

REACTIONS (1)
  - Pleural effusion [Recovering/Resolving]
